FAERS Safety Report 6110539-9 (Version None)
Quarter: 2009Q1

REPORT INFORMATION
  Report Type: 
  Country: None (occurrence: None)
  Receive Date: 20090310
  Receipt Date: 20090217
  Transmission Date: 20090719
  Serious: No
  Sender: FDA-Public Use
  Company Number: US-B.I. PHARMACEUTICALS,INC./RIDGEFIELD-2009-BP-02749BP

PATIENT

DRUGS (2)
  1. VIRAMUNE [Suspect]
  2. TRUVADA [Suspect]

REACTIONS (2)
  - LIPOATROPHY [None]
  - OSTEOPENIA [None]
